FAERS Safety Report 4899029-9 (Version None)
Quarter: 2006Q1

REPORT INFORMATION
  Report Type: 
  Country: None (occurrence: None)
  Receive Date: 20060127
  Receipt Date: 20060106
  Transmission Date: 20060701
  Serious: Yes (Hospitalization, Other)
  Sender: FDA-Public Use
  Company Number: US_0409105791

PATIENT
  Age: 45 Year
  Sex: Female
  Weight: 111.1 kg

DRUGS (6)
  1. ZYPREXA [Suspect]
     Indication: SCHIZOPHRENIA
     Dosage: 10 MG, DAILY (1/D), ORALY
     Route: 048
     Dates: start: 19970101
  2. RISPERDAL/SWE/(RISPERIDONE) [Concomitant]
  3. BETHANECHOL (BETHANECHOL) [Concomitant]
  4. BENICAR/USA/(OLMESARTAN MEDOXOMIL) [Concomitant]
  5. LEVAQUIN [Concomitant]
  6. ZOCOR [Concomitant]

REACTIONS (14)
  - BLOOD CHOLESTEROL ABNORMAL [None]
  - DIABETES MELLITUS [None]
  - GLUCOSE TOLERANCE IMPAIRED [None]
  - HYPERGLYCAEMIA [None]
  - HYPERGLYCAEMIC HYPEROSMOLAR NONKETOTIC SYNDROME [None]
  - HYPERINSULINISM [None]
  - HYPERPHAGIA [None]
  - HYPERTENSION [None]
  - HYPOGLYCAEMIA [None]
  - INSULIN RESISTANCE [None]
  - MENTAL DISORDER [None]
  - OBESITY [None]
  - PANCREATITIS [None]
  - VISION BLURRED [None]
